FAERS Safety Report 4580046-3 (Version None)
Quarter: 2005Q1

REPORT INFORMATION
  Report Type: 
  Country: None (occurrence: None)
  Receive Date: 20050214
  Receipt Date: 20041124
  Transmission Date: 20050727
  Serious: Yes (Hospitalization, Other)
  Sender: FDA-Public Use
  Company Number: US-MERCK-0411USA03988

PATIENT
  Age: 62 Year
  Sex: Female
  Weight: 80 kg

DRUGS (7)
  1. VIOXX [Suspect]
     Indication: ARTHRITIS
     Route: 048
     Dates: start: 19991201, end: 20031101
  2. K-DUR 10 [Concomitant]
     Route: 048
     Dates: start: 19990723, end: 20030219
  3. K-DUR 10 [Concomitant]
     Route: 048
     Dates: start: 20030306
  4. MINIPRESS [Concomitant]
     Route: 048
     Dates: start: 20010307, end: 20021212
  5. LOPRESSOR [Concomitant]
     Route: 048
     Dates: start: 20010307, end: 20010423
  6. LOPRESSOR [Concomitant]
     Route: 048
     Dates: start: 20010423, end: 20021206
  7. LOZOL [Concomitant]
     Route: 048
     Dates: start: 19990723, end: 20010307

REACTIONS (17)
  - ABDOMINAL PAIN [None]
  - ARTHROPATHY [None]
  - BACK INJURY [None]
  - BACK PAIN [None]
  - BLOOD CALCIUM INCREASED [None]
  - CERVICAL POLYP [None]
  - CHOLECYSTITIS [None]
  - FATIGUE [None]
  - HEART RATE DECREASED [None]
  - HYPERPARATHYROIDISM [None]
  - INTESTINAL CYST [None]
  - MIGRAINE [None]
  - MYOCARDIAL INFARCTION [None]
  - NAUSEA [None]
  - PARATHYROID TUMOUR BENIGN [None]
  - TENOSYNOVITIS [None]
  - THROMBOPHLEBITIS SUPERFICIAL [None]
